FAERS Safety Report 8406359-2 (Version None)
Quarter: 2012Q2

REPORT INFORMATION
  Report Type: 
  Country: None (occurrence: None)
  Receive Date: 20120604
  Receipt Date: 20120531
  Transmission Date: 20120825
  Serious: Yes (Hospitalization, Other)
  Sender: FDA-Public Use
  Company Number: PHHY2012DE041180

PATIENT
  Sex: Male
  Weight: 72.5 kg

DRUGS (2)
  1. REQUIP [Concomitant]
     Indication: PARKINSON'S DISEASE
  2. ZOMETA [Suspect]
     Indication: METASTASES TO BONE
     Dosage: 4MG/5ML EVERY 4 WEEKS
     Route: 042
     Dates: start: 20091227

REACTIONS (5)
  - BONE SWELLING [None]
  - JAW DISORDER [None]
  - ERYTHEMA [None]
  - OSTEONECROSIS OF JAW [None]
  - PAIN [None]
